FAERS Safety Report 13104265 (Version 2)
Quarter: 2017Q1

REPORT INFORMATION
  Report Type: Spontaneous
  Country: US (occurrence: US)
  Receive Date: 20170111
  Receipt Date: 20170314
  Transmission Date: 20170428
  Serious: No
  Sender: FDA-Public Use
  Company Number: US-JNJFOC-20170107099

PATIENT
  Sex: Female
  Weight: 71.22 kg

DRUGS (1)
  1. ELMIRON [Suspect]
     Active Substance: PENTOSAN POLYSULFATE SODIUM
     Indication: CYSTITIS INTERSTITIAL
     Dosage: STARTED IN HER EARLY 30^S
     Route: 048

REACTIONS (4)
  - Bursitis [Unknown]
  - Alopecia [Unknown]
  - Spondylitis [Unknown]
  - Cystitis interstitial [Unknown]
